FAERS Safety Report 23920701 (Version 2)
Quarter: 2024Q2

REPORT INFORMATION
  Report Type: Report from Study
  Country: US (occurrence: US)
  Receive Date: 20240530
  Receipt Date: 20240604
  Transmission Date: 20240716
  Serious: Yes (Death, Other)
  Sender: FDA-Public Use
  Company Number: US-ABBVIE-5779263

PATIENT
  Age: 84 Year
  Sex: Female

DRUGS (1)
  1. BOTOX COSMETIC [Suspect]
     Active Substance: ONABOTULINUMTOXINA
     Indication: Product used for unknown indication
     Dosage: TIME INTERVAL: AS NECESSARY
     Route: 065

REACTIONS (5)
  - Death [Fatal]
  - Myasthenia gravis [Unknown]
  - Posture abnormal [Unknown]
  - Aphasia [Unknown]
  - Dysphagia [Unknown]
